FAERS Safety Report 8074762-9 (Version None)
Quarter: 2012Q1

REPORT INFORMATION
  Report Type: 
  Country: None (occurrence: None)
  Receive Date: 20120126
  Receipt Date: 20120119
  Transmission Date: 20120608
  Serious: Yes (Other)
  Sender: FDA-Public Use
  Company Number: BR-ROCHE-1032294

PATIENT
  Sex: Female
  Weight: 70 kg

DRUGS (1)
  1. ACTEMRA [Suspect]
     Indication: RHEUMATOID ARTHRITIS
     Route: 042
     Dates: start: 20091101, end: 20110804

REACTIONS (5)
  - MENORRHAGIA [None]
  - WOUND [None]
  - ANAEMIA [None]
  - ASTHENIA [None]
  - PAIN IN EXTREMITY [None]
